FAERS Safety Report 15771725 (Version 1)
Quarter: 2018Q4

REPORT INFORMATION
  Report Type: Spontaneous
  Country: US (occurrence: US)
  Receive Date: 20181228
  Receipt Date: 20181228
  Transmission Date: 20190205
  Serious: Yes (Death)
  Sender: FDA-Public Use
  Company Number: None

PATIENT
  Age: 60 Year
  Sex: Female

DRUGS (14)
  1. SIROLIMUS. [Suspect]
     Active Substance: SIROLIMUS
     Indication: RENAL TRANSPLANT
     Route: 048
     Dates: start: 20180831
  2. RANITIDINE. [Concomitant]
     Active Substance: RANITIDINE
  3. CALCITRIOL. [Concomitant]
     Active Substance: CALCITRIOL
  4. LANTANOPROST [Concomitant]
     Active Substance: LATANOPROST
  5. MAGNESIUM-OX [Concomitant]
  6. COMBIGAN [Concomitant]
     Active Substance: BRIMONIDINE TARTRATE\TIMOLOL MALEATE
  7. ENVARSUS XR [Concomitant]
     Active Substance: TACROLIMUS
  8. MYCOPHENLOIC [Concomitant]
  9. SENSIPAR [Concomitant]
     Active Substance: CINACALCET HYDROCHLORIDE
  10. PRAVASTATIN. [Concomitant]
     Active Substance: PRAVASTATIN
  11. CARVEDILOL. [Concomitant]
     Active Substance: CARVEDILOL
  12. SMZ-TMP [Concomitant]
     Active Substance: SULFAMETHOXAZOLE\TRIMETHOPRIM
  13. OYSTER SHELL [Concomitant]
     Active Substance: OSTREA EDULIS SHELL
  14. PREDNISONE. [Concomitant]
     Active Substance: PREDNISONE

REACTIONS (1)
  - Death [None]

NARRATIVE: CASE EVENT DATE: 20181214
